FAERS Safety Report 6611200-4 (Version None)
Quarter: 2010Q1

REPORT INFORMATION
  Report Type: 
  Country: None (occurrence: None)
  Receive Date: 20100303
  Receipt Date: 20100216
  Transmission Date: 20100710
  Serious: Yes (Other)
  Sender: FDA-Public Use
  Company Number: US-ELI_LILLY_AND_COMPANY-US200910005220

PATIENT
  Sex: Female

DRUGS (4)
  1. FORTEO [Suspect]
     Indication: PELVIC FRACTURE
     Dates: start: 20090101
  2. CRESTOR [Concomitant]
     Dosage: 5 MG, UNK
  3. SYNTHROID [Concomitant]
     Dosage: 75 MG, UNK
  4. RECLAST [Concomitant]

REACTIONS (1)
  - PELVIC FRACTURE [None]
